FAERS Safety Report 5821009-7 (Version None)
Quarter: 2008Q3

REPORT INFORMATION
  Report Type: 
  Country: None (occurrence: None)
  Receive Date: 20080724
  Receipt Date: 20080718
  Transmission Date: 20090109
  Serious: Yes (Hospitalization)
  Sender: FDA-Public Use
  Company Number: PH-NOVOPROD-275898

PATIENT
  Age: 9 Year
  Sex: Male
  Weight: 18 kg

DRUGS (2)
  1. NOVOSEVEN [Suspect]
     Indication: HAEMORRHAGE
     Dosage: 90 UG/KG, UNK
     Route: 042
     Dates: start: 20080219
  2. NOVOSEVEN [Concomitant]
     Dosage: 3.6 UG/KG, QD
     Route: 042

REACTIONS (2)
  - SEPSIS [None]
  - TRANSMISSION OF AN INFECTIOUS AGENT VIA A MEDICINAL PRODUCT [None]
